FAERS Safety Report 21211264 (Version 1)
Quarter: 2022Q3

REPORT INFORMATION
  Report Type: Spontaneous
  Country: CA (occurrence: CA)
  Receive Date: 20220815
  Receipt Date: 20220815
  Transmission Date: 20221027
  Serious: Yes (Other)
  Sender: FDA-Public Use
  Company Number: None

PATIENT
  Age: 21 Year
  Sex: Male

DRUGS (1)
  1. METHOTREXATE [Suspect]
     Active Substance: METHOTREXATE
     Indication: Product used for unknown indication
     Dosage: 1 EVERY 1 WEEKS
     Route: 058

REACTIONS (22)
  - Abdominal pain [Recovered/Resolved]
  - Abscess intestinal [Recovered/Resolved]
  - Aphthous ulcer [Recovered/Resolved]
  - Colitis [Recovered/Resolved]
  - Cryptitis [Recovered/Resolved]
  - Dehydration [Recovered/Resolved]
  - Diarrhoea haemorrhagic [Recovered/Resolved]
  - Drug ineffective [Unknown]
  - Enteritis [Recovered/Resolved]
  - Frequent bowel movements [Recovered/Resolved]
  - Gastritis [Recovered/Resolved]
  - Gastrointestinal hypomotility [Recovered/Resolved]
  - Hepatomegaly [Recovered/Resolved]
  - Hiatus hernia [Recovered/Resolved]
  - Inflammatory bowel disease [Recovered/Resolved]
  - Iron deficiency anaemia [Recovered/Resolved]
  - Lymphadenopathy [Recovered/Resolved]
  - Mucosal hypertrophy [Recovered/Resolved]
  - Nausea [Recovered/Resolved]
  - Symptom recurrence [Recovered/Resolved]
  - Vomiting [Recovered/Resolved]
  - Weight decreased [Recovered/Resolved]
